FAERS Safety Report 4791937-2 (Version None)
Quarter: 2005Q4

REPORT INFORMATION
  Report Type: 
  Country: None (occurrence: None)
  Receive Date: 20051007
  Receipt Date: 20050928
  Transmission Date: 20060501
  Serious: Yes (Death, Hospitalization)
  Sender: FDA-Public Use
  Company Number: GR-ABBOTT-05P-066-0312454-00

PATIENT
  Age: 85 Year
  Sex: Female

DRUGS (7)
  1. ZEMPLAR [Suspect]
     Indication: RENAL FAILURE CHRONIC
     Route: 042
     Dates: start: 20050817, end: 20050913
  2. AMLODIPINE BESYLATE [Concomitant]
     Indication: HYPERTENSION
     Route: 048
     Dates: end: 20050917
  3. MOXONIDINE [Concomitant]
     Indication: HYPERTENSION
     Route: 048
     Dates: end: 20050917
  4. SEVELAMER HYDROCHLORIDE [Concomitant]
     Indication: RENAL FAILURE CHRONIC
     Route: 048
     Dates: end: 20050917
  5. TITRALAC [Concomitant]
     Indication: RENAL FAILURE CHRONIC
     Route: 048
     Dates: end: 20050917
  6. PANCORAN TTS [Concomitant]
     Indication: HYPERTENSION
     Route: 062
     Dates: end: 20050917
  7. DARBEPOETIN ALFA [Concomitant]
     Indication: RENAL FAILURE CHRONIC
     Route: 042
     Dates: end: 20050917

REACTIONS (5)
  - BRADYCARDIA [None]
  - CEREBROVASCULAR ACCIDENT [None]
  - DYSPHORIA [None]
  - HYPERCALCAEMIA [None]
  - INFECTION [None]
